FAERS Safety Report 19212608 (Version 2)
Quarter: 2021Q2

REPORT INFORMATION
  Report Type: Report from Study
  Country: US (occurrence: US)
  Receive Date: 20210504
  Receipt Date: 20210504
  Transmission Date: 20210717
  Serious: No
  Sender: FDA-Public Use
  Company Number: US-LUNDBECK-DKLU3031401

PATIENT
  Age: 67 Year
  Sex: Female

DRUGS (1)
  1. VYEPTI [Suspect]
     Active Substance: EPTINEZUMAB-JJMR
     Indication: MIGRAINE
     Route: 041
     Dates: start: 20210329

REACTIONS (16)
  - Hyperacusis [Unknown]
  - Dizziness [Unknown]
  - Oropharyngeal pain [Unknown]
  - Migraine [Unknown]
  - Vertigo [Unknown]
  - Neck pain [Unknown]
  - Sleep disorder [Unknown]
  - Memory impairment [Unknown]
  - Parosmia [Unknown]
  - Pain [Unknown]
  - Mood altered [Unknown]
  - Fatigue [Unknown]
  - Head injury [Unknown]
  - Feeling hot [Unknown]
  - Fatigue [Unknown]
  - Photophobia [Unknown]

NARRATIVE: CASE EVENT DATE: 20210329
